FAERS Safety Report 21049374 (Version 1)
Quarter: 2022Q3

REPORT INFORMATION
  Report Type: Spontaneous
  Country: SK (occurrence: SK)
  Receive Date: 20220706
  Receipt Date: 20220706
  Transmission Date: 20221026
  Serious: Yes (Hospitalization, Other)
  Sender: FDA-Public Use
  Company Number: SK-ALLERGAN-2221687US

PATIENT
  Sex: Male
  Weight: 71 kg

DRUGS (4)
  1. MEMANTINE [Suspect]
     Active Substance: MEMANTINE
     Indication: Dementia Alzheimer^s type
     Dosage: 20 MG, QD
  2. MIRTAZAPINE [Suspect]
     Active Substance: MIRTAZAPINE
     Indication: Dementia Alzheimer^s type
     Dosage: 45 MG, QD
  3. RISPERIDONE [Suspect]
     Active Substance: RISPERIDONE
     Indication: Dementia Alzheimer^s type
     Dosage: 3 MG, QD
  4. DULOXETINE [Suspect]
     Active Substance: DULOXETINE
     Indication: Dementia Alzheimer^s type
     Dosage: 60 MG, QD

REACTIONS (2)
  - Liver disorder [Recovered/Resolved]
  - Thrombocytopenia [Recovered/Resolved]
